FAERS Safety Report 20404247 (Version 3)
Quarter: 2022Q1

REPORT INFORMATION
  Report Type: Spontaneous
  Country: US (occurrence: US)
  Receive Date: 20220131
  Receipt Date: 20220218
  Transmission Date: 20220423
  Serious: No
  Sender: FDA-Public Use
  Company Number: US-JNJFOC-20220113484

PATIENT
  Age: 52 Year
  Sex: Female
  Weight: 95.340 kg

DRUGS (1)
  1. TREMFYA [Suspect]
     Active Substance: GUSELKUMAB
     Indication: Psoriatic arthropathy
     Route: 058
     Dates: start: 20211209

REACTIONS (4)
  - Product dose omission issue [Unknown]
  - Injection site rash [Recovered/Resolved]
  - Wrong technique in device usage process [Unknown]
  - Device issue [Unknown]

NARRATIVE: CASE EVENT DATE: 20211209
